FAERS Safety Report 9688314 (Version 1)
Quarter: 2013Q4

REPORT INFORMATION
  Report Type: Spontaneous
  Country: US (occurrence: None)
  Receive Date: 20131113
  Receipt Date: 20131113
  Transmission Date: 20140711
  Serious: Yes (Other)
  Sender: FDA-Public Use
  Company Number: None

PATIENT
  Sex: Male
  Weight: 70.76 kg

DRUGS (11)
  1. RECLAST [Suspect]
     Indication: OSTEOPOROSIS
     Dates: start: 20110125, end: 201303
  2. PREDNISONE [Concomitant]
  3. DIAZEPAM [Concomitant]
  4. ENBREL [Concomitant]
  5. HYDROCODONE [Concomitant]
  6. PEPPERMINE GELS [Concomitant]
  7. GARLIC [Concomitant]
  8. CORAL CALCIUM [Concomitant]
  9. VITAMIN D3 [Concomitant]
  10. B COMPLEX [Concomitant]
  11. MAGNESIUM [Concomitant]

REACTIONS (4)
  - Bone pain [None]
  - Muscle atrophy [None]
  - Myalgia [None]
  - Weight decreased [None]
